FAERS Safety Report 9857820 (Version 1)
Quarter: 2014Q1

REPORT INFORMATION
  Report Type: Other
  Country: ES (occurrence: ES)
  Receive Date: 20140131
  Receipt Date: 20140131
  Transmission Date: 20141002
  Serious: Yes (Other)
  Sender: FDA-Public Use
  Company Number: ES-BRISTOL-MYERS SQUIBB COMPANY-20104576

PATIENT
  Age: 28 Year
  Sex: Male

DRUGS (3)
  1. ARIPIPRAZOLE [Suspect]
     Indication: EATING DISORDER SYMPTOM
  2. FLUOXETINE [Interacting]
     Indication: EATING DISORDER SYMPTOM
     Dosage: INITIAL DOSE:60 MG FOR 3 MNTHS
  3. TOPIRAMATE [Concomitant]
     Indication: EATING DISORDER SYMPTOM
     Dosage: INITIAL DOSE:UNK, LATER DOSE WAS INCREASED

REACTIONS (3)
  - Ventricular arrhythmia [Unknown]
  - Drug interaction [Unknown]
  - Off label use [Unknown]
